FAERS Safety Report 8367618 (Version 2)
Quarter: 2013Q1

REPORT INFORMATION
  Report Type: Report from Study
  Country: US (occurrence: US)
  Receive Date: 20120128
  Receipt Date: 20130129
  Transmission Date: 20140127
  Serious: No
  Sender: FDA-Public Use
  Company Number: US-ABBOTT-11P-163-0732349-00

PATIENT
  Age: 57 Year
  Sex: Female
  Weight: 93.07 kg

DRUGS (9)
  1. HUMIRA 40 MG/0.8 ML PEN [Suspect]
     Indication: RHEUMATOID ARTHRITIS
     Dates: start: 201106, end: 201111
  2. HUMIRA 40 MG/ 0.8 ML PRE-FILLED SYRINGE [Suspect]
     Dates: start: 201111
  3. THYROID MEDICATION [Concomitant]
     Indication: HYPOTHYROIDISM
  4. PROMETRIUM [Concomitant]
     Indication: HORMONE REPLACEMENT THERAPY
  5. PREMARIN [Concomitant]
     Indication: HORMONE REPLACEMENT THERAPY
  6. UNKNOWN MEDICATION [Concomitant]
     Indication: INSOMNIA
  7. UNKNOWN MEDICATION [Concomitant]
     Indication: MUSCLE RELAXANT THERAPY
  8. PRILOSEC [Concomitant]
     Indication: HIATUS HERNIA
  9. PRILOSEC [Concomitant]
     Indication: GASTROOESOPHAGEAL REFLUX DISEASE

REACTIONS (2)
  - Injection site pain [Not Recovered/Not Resolved]
  - Arthralgia [Not Recovered/Not Resolved]
